FAERS Safety Report 7092306-5 (Version None)
Quarter: 2010Q4

REPORT INFORMATION
  Report Type: 
  Country: None (occurrence: None)
  Receive Date: 20101109
  Receipt Date: 20101104
  Transmission Date: 20110411
  Serious: Yes (Death, Hospitalization)
  Sender: FDA-Public Use
  Company Number: JP-ABBOTT-10P-087-0681922-00

PATIENT
  Age: 69 Year
  Sex: Male
  Weight: 70.1 kg

DRUGS (7)
  1. LEUPROLIDE ACETATE [Suspect]
     Indication: PROSTATE CANCER STAGE IV
     Route: 058
     Dates: start: 20070705
  2. BICALUTAMIDE [Concomitant]
     Indication: PROSTATE CANCER STAGE IV
     Route: 048
     Dates: start: 20080117, end: 20081008
  3. FLUTAMIDE [Concomitant]
     Indication: PROSTATE CANCER STAGE IV
     Route: 048
     Dates: end: 20080117
  4. URSO 250 [Concomitant]
     Indication: PROPHYLAXIS
     Route: 048
     Dates: end: 20080117
  5. URSO 250 [Concomitant]
     Indication: HEPATIC FUNCTION ABNORMAL
  6. AVISHOT [Concomitant]
     Indication: BENIGN PROSTATIC HYPERPLASIA
     Route: 048
  7. ESTRAMUSTINE PHOSPHATE SODIUM [Concomitant]
     Indication: PROSTATE CANCER STAGE IV
     Route: 048
     Dates: start: 20081009, end: 20090217

REACTIONS (2)
  - BRAIN NEOPLASM [None]
  - HOT FLUSH [None]
